FAERS Safety Report 25130795 (Version 1)
Quarter: 2025Q1

REPORT INFORMATION
  Report Type: Report from Study
  Country: US (occurrence: US)
  Receive Date: 20250327
  Receipt Date: 20250327
  Transmission Date: 20250409
  Serious: Yes (Hospitalization, Other)
  Sender: NOVARTIS
  Company Number: US-002147023-NVSC2025US049624

PATIENT
  Age: 40 Year

DRUGS (1)
  1. COSENTYX [Suspect]
     Active Substance: SECUKINUMAB
     Indication: Product used for unknown indication
     Dosage: 300 MG, QMO
     Route: 042
     Dates: start: 20240909, end: 20250202

REACTIONS (9)
  - Intestinal haemorrhage [Recovering/Resolving]
  - Internal haemorrhage [Not Recovered/Not Resolved]
  - Haematochezia [Unknown]
  - Mucous stools [Unknown]
  - Intestinal ulcer [Unknown]
  - Nausea [Unknown]
  - Abdominal distension [Unknown]
  - Haemorrhoids [Unknown]
  - Gastrointestinal disorder [Unknown]

NARRATIVE: CASE EVENT DATE: 20241101
